FAERS Safety Report 8247924-5 (Version None)
Quarter: 2012Q1

REPORT INFORMATION
  Report Type: 
  Country: None (occurrence: None)
  Receive Date: 20120330
  Receipt Date: 20120328
  Transmission Date: 20120608
  Serious: Yes (Death)
  Sender: FDA-Public Use
  Company Number: AU-JNJFOC-20120311673

PATIENT

DRUGS (7)
  1. NEUPOGEN [Concomitant]
     Indication: PROPHYLAXIS
     Route: 065
  2. ITRACONAZOLE [Suspect]
     Indication: ANTIFUNGAL PROPHYLAXIS
     Dosage: FOR 15 DAYS
     Route: 048
  3. FLUCONAZOLE [Suspect]
     Indication: ANTIFUNGAL PROPHYLAXIS
     Route: 065
  4. PROTON PUMP INHIBITOR [Concomitant]
     Indication: PROPHYLAXIS AGAINST GASTROINTESTINAL ULCER
     Route: 065
  5. ANTHRACYCLINE [Suspect]
     Indication: ACUTE MYELOID LEUKAEMIA
     Route: 065
  6. CYTARABINE [Suspect]
     Indication: ACUTE MYELOID LEUKAEMIA
     Route: 065
  7. ITRACONAZOLE [Suspect]
     Dosage: FOR 23 DAYS
     Route: 048

REACTIONS (1)
  - BRONCHOPULMONARY ASPERGILLOSIS [None]
